FAERS Safety Report 6894919-X (Version None)
Quarter: 2010Q3

REPORT INFORMATION
  Report Type: 
  Country: None (occurrence: None)
  Receive Date: 20100802
  Receipt Date: 20100722
  Transmission Date: 20110219
  Serious: Yes (Hospitalization)
  Sender: FDA-Public Use
  Company Number: DE-ROCHE-675575

PATIENT
  Sex: Female
  Weight: 71.6 kg

DRUGS (23)
  1. MYCOPHENOLATE MOFETIL [Suspect]
     Dosage: LAST DOSE PRIOR TO SAE: 28 DEC 2009. TEMPORARILY INTERRUPTED.
     Route: 048
     Dates: start: 20090830, end: 20091229
  2. MYCOPHENOLATE MOFETIL [Suspect]
     Route: 048
     Dates: start: 20100107
  3. ADVAGRAF [Suspect]
     Dosage: LAST DOSE PRIOR TO SAE: 28 DEC 2009
     Route: 048
     Dates: start: 20090830
  4. ADVAGRAF [Suspect]
     Route: 048
     Dates: end: 20091023
  5. ADVAGRAF [Suspect]
     Dosage: REDUCED
     Route: 048
     Dates: start: 20091023
  6. ADVAGRAF [Suspect]
     Dosage: REDUCED
     Route: 048
     Dates: start: 20100111
  7. PANTOZOL [Concomitant]
     Dates: start: 20091228
  8. PANTOZOL [Concomitant]
  9. BISOPROLOL [Concomitant]
     Dosage: TDD: 1 UNIT
  10. BISOPROLOL [Concomitant]
  11. AMITRIPTYLINE HCL [Concomitant]
     Dates: start: 20091228
  12. AMITRIPTYLINE HCL [Concomitant]
  13. MAGNESIUM [Concomitant]
  14. VALCYTE [Concomitant]
     Dates: end: 20091029
  15. MAGNESIUM VERLA DRAGEES [Concomitant]
     Dates: start: 20091228
  16. LASIX [Concomitant]
     Dates: start: 20091228
  17. LEVODOPA [Concomitant]
     Dosage: DRUG REPORTED: LEVODOPA 100/25
     Dates: start: 20091228
  18. MIRCERA [Concomitant]
     Dates: start: 20091228
  19. CYMEVEN [Concomitant]
     Dates: start: 20091201
  20. MADOPAR [Concomitant]
     Dosage: TOTAL DAILY DOSE:4UNITS /DAY
     Route: 065
     Dates: start: 20091026
  21. MADOPAR [Concomitant]
     Route: 065
     Dates: start: 20091026
  22. FUROSEMIDE [Concomitant]
     Dosage: TOTAL DAILY DOSE:0.5 UNITS
     Route: 065
     Dates: start: 20091030
  23. FUROSEMIDE [Concomitant]
     Route: 065
     Dates: start: 20091030

REACTIONS (4)
  - CYTOMEGALOVIRUS INFECTION [None]
  - PANCYTOPENIA [None]
  - TRANSPLANT FAILURE [None]
  - URINARY TRACT INFECTION [None]
